FAERS Safety Report 4395867-X (Version None)
Quarter: 2004Q3

REPORT INFORMATION
  Report Type: 
  Country: None (occurrence: None)
  Receive Date: 20040709
  Receipt Date: 20040622
  Transmission Date: 20050211
  Serious: Yes (Hospitalization, Disabling, Other)
  Sender: FDA-Public Use
  Company Number: US-JNJFOC-20040405622

PATIENT
  Age: 63 Year
  Sex: Female

DRUGS (4)
  1. REMICADE [Suspect]
     Indication: RHEUMATOID ARTHRITIS
     Dosage: 200 MG, INTRAVENOUS
     Route: 042
     Dates: start: 20030207
  2. REMICADE [Suspect]
  3. PREDNISONE TAB [Concomitant]
  4. METHOTREXATE SODIUM [Concomitant]

REACTIONS (2)
  - LUNG INFILTRATION [None]
  - MYCOBACTERIUM AVIUM COMPLEX INFECTION [None]
